FAERS Safety Report 4329667-3 (Version None)
Quarter: 2004Q1

REPORT INFORMATION
  Report Type: 
  Country: None (occurrence: None)
  Receive Date: 20040329
  Receipt Date: 20040216
  Transmission Date: 20041129
  Serious: No
  Sender: FDA-Public Use
  Company Number: 04P-163-0250448-00

PATIENT
  Age: 54 Year
  Sex: Female

DRUGS (9)
  1. HUMIRA [Suspect]
     Indication: RHEUMATOID ARTHRITIS
     Dosage: 40 MG, 1 IN 2 WK, SUBCUTANEOUS
     Route: 058
     Dates: start: 20040121
  2. METHOTREXATE [Concomitant]
  3. MULTI-VITAMINS [Concomitant]
  4. CALCIUM CARBONATE [Concomitant]
  5. BELLADONA [Concomitant]
  6. ISONIAZID [Concomitant]
  7. PYRIDOXINE HYDROCHLORIDE [Concomitant]
  8. FOLIC ACID [Concomitant]
  9. ALENDRONATE SODIUM [Concomitant]

REACTIONS (5)
  - CHEST DISCOMFORT [None]
  - NASOPHARYNGITIS [None]
  - PHARYNGOLARYNGEAL PAIN [None]
  - PRODUCTIVE COUGH [None]
  - PYREXIA [None]
